FAERS Safety Report 15184033 (Version 2)
Quarter: 2018Q3

REPORT INFORMATION
  Report Type: Report from Study
  Country: NL (occurrence: NL)
  Receive Date: 20180723
  Receipt Date: 20180913
  Transmission Date: 20181010
  Serious: Yes (Hospitalization, Other)
  Sender: FDA-Public Use
  Company Number: NL-MYLANLABS-2018M1053619

PATIENT
  Age: 36 Year
  Sex: Female

DRUGS (4)
  1. CIPROFLOXACIN. [Suspect]
     Active Substance: CIPROFLOXACIN
     Indication: EAR DISORDER
     Dosage: UNK
     Route: 065
  2. COPAXONE [Suspect]
     Active Substance: GLATIRAMER ACETATE
     Indication: PRODUCT USED FOR UNKNOWN INDICATION
     Dosage: TEMPORALLY STOPPED DUE TO AE, DOSE AND FREQUENCY(3 IN 1 WEEK)
     Route: 058
     Dates: start: 20170406, end: 20180408
  3. VITAMINE B12 AGUETTANT [Suspect]
     Active Substance: CYANOCOBALAMIN
     Indication: PRODUCT USED FOR UNKNOWN INDICATION
     Dosage: UNK
     Route: 065
  4. NUVARING [Concomitant]
     Active Substance: ETHINYL ESTRADIOL\ETONOGESTREL
     Indication: PRODUCT USED FOR UNKNOWN INDICATION
     Dosage: UNK

REACTIONS (9)
  - Generalised erythema [Unknown]
  - Nausea [Unknown]
  - Feeling hot [Unknown]
  - Ear infection [Recovering/Resolving]
  - Gait disturbance [Recovering/Resolving]
  - Swelling face [Unknown]
  - Swollen tongue [Unknown]
  - Ear disorder [Recovering/Resolving]
  - Anaphylactic shock [Recovered/Resolved]

NARRATIVE: CASE EVENT DATE: 2018
